FAERS Safety Report 15335602 (Version 9)
Quarter: 2022Q2

REPORT INFORMATION
  Report Type: Spontaneous
  Country: US (occurrence: US)
  Receive Date: 20180830
  Receipt Date: 20220530
  Transmission Date: 20220721
  Serious: Yes (Death, Hospitalization)
  Sender: FDA-Public Use
  Company Number: None

PATIENT
  Age: 21 Year
  Sex: Female
  Weight: 48.3 kg

DRUGS (6)
  1. KYMRIAH [Suspect]
     Active Substance: TISAGENLECLEUCEL
     Indication: Acute lymphocytic leukaemia
     Dosage: UNK UNK, ONCE/SINGLE (0.2E6/KG BODY WEIGHT)
     Route: 042
     Dates: start: 20180216
  2. LEVETIRACETAM [Concomitant]
     Active Substance: LEVETIRACETAM
     Indication: Prophylaxis
     Dosage: 500 MG, Q12H
     Route: 042
  3. CEFEPIN [Concomitant]
     Indication: Neutropenia
     Dosage: 2000 MG, Q8H
     Route: 042
  4. LEVOFLOXACIN [Concomitant]
     Active Substance: LEVOFLOXACIN
     Indication: Neutropenia
     Dosage: 10 MG/KG
     Route: 048
  5. VANCOMYCIN [Concomitant]
     Active Substance: VANCOMYCIN
     Indication: Neutropenia
     Dosage: 15 MG/KG
     Route: 042
  6. VORICONAZOLE [Concomitant]
     Active Substance: VORICONAZOLE
     Indication: Neutropenia
     Dosage: 200 MG, Q12H
     Route: 048

REACTIONS (14)
  - Acute lymphocytic leukaemia [Fatal]
  - Malignant neoplasm progression [Fatal]
  - Cytokine release syndrome [Recovered/Resolved]
  - Pyrexia [Recovered/Resolved]
  - Abdominal distension [Unknown]
  - Muscular weakness [Unknown]
  - Rash [Unknown]
  - Immune effector cell-associated neurotoxicity syndrome [Recovered/Resolved]
  - Neurotoxicity [Unknown]
  - Somnolence [Unknown]
  - Confusional state [Unknown]
  - Amnesia [Unknown]
  - Mental status changes [Unknown]
  - Dysphagia [Unknown]

NARRATIVE: CASE EVENT DATE: 20180309
